FAERS Safety Report 9298659 (Version 2)
Quarter: 2013Q2

REPORT INFORMATION
  Report Type: Spontaneous
  Country: US (occurrence: US)
  Receive Date: 20130516
  Receipt Date: 20130604
  Transmission Date: 20140414
  Serious: No
  Sender: FDA-Public Use
  Company Number: US-BRACCO-008833

PATIENT
  Age: 65 Year
  Sex: Female

DRUGS (5)
  1. SYNTHROID [Concomitant]
  2. INSULIN [Concomitant]
  3. MULTIHANCE [Suspect]
     Indication: NUCLEAR MAGNETIC RESONANCE IMAGING ABDOMINAL
     Dosage: ADMINISTERED TO THE BACK OF THE RIGHT HAND
     Route: 042
     Dates: start: 20121024, end: 20121024
  4. ZYRTEC [Concomitant]
  5. PREDNISONE [Concomitant]

REACTIONS (3)
  - Hypersensitivity [Recovering/Resolving]
  - Vein disorder [Recovering/Resolving]
  - Erythema [Recovering/Resolving]
